FAERS Safety Report 5610710-6 (Version None)
Quarter: 2008Q1

REPORT INFORMATION
  Report Type: 
  Country: None (occurrence: None)
  Receive Date: 20080201
  Receipt Date: 20080122
  Transmission Date: 20080703
  Serious: Yes (Hospitalization)
  Sender: FDA-Public Use
  Company Number: US-AMGEN-US262296

PATIENT
  Sex: Male
  Weight: 81.7 kg

DRUGS (1)
  1. PROCRIT [Suspect]
     Indication: ANAEMIA
     Route: 065
     Dates: start: 20050101

REACTIONS (3)
  - PROSTATIC OPERATION [None]
  - SKIN ATROPHY [None]
  - SPIDER VEIN [None]
